FAERS Safety Report 7505847-0 (Version None)
Quarter: 2011Q2

REPORT INFORMATION
  Report Type: 
  Country: None (occurrence: None)
  Receive Date: 20110526
  Receipt Date: 20110516
  Transmission Date: 20111010
  Serious: Yes (Hospitalization)
  Sender: FDA-Public Use
  Company Number: US-ELI_LILLY_AND_COMPANY-US201105005736

PATIENT
  Sex: Female

DRUGS (4)
  1. FORTEO [Suspect]
     Indication: OSTEOPOROSIS
     Dosage: 20 UG, QD
  2. CALCIUM CARBONATE [Concomitant]
  3. VITAMIN E [Concomitant]
  4. VITAMIN D [Concomitant]

REACTIONS (13)
  - DIABETES MELLITUS [None]
  - EAR PAIN [None]
  - SLEEP APNOEA SYNDROME [None]
  - HEAD DISCOMFORT [None]
  - DRUG ADMINISTRATION ERROR [None]
  - PAIN IN EXTREMITY [None]
  - PAIN [None]
  - BONE DENSITY DECREASED [None]
  - INFLUENZA [None]
  - SPINAL FRACTURE [None]
  - BLOOD FIBRINOGEN INCREASED [None]
  - FEELING ABNORMAL [None]
  - ARTHRALGIA [None]
